FAERS Safety Report 6013422-2 (Version None)
Quarter: 2008Q4

REPORT INFORMATION
  Report Type: 
  Country: None (occurrence: None)
  Receive Date: 20081219
  Receipt Date: 20081208
  Transmission Date: 20090506
  Serious: Yes (Life-Threatening, Hospitalization)
  Sender: FDA-Public Use
  Company Number: JP-PFIZER INC-2008079675

PATIENT

DRUGS (10)
  1. SUNITINIB MALATE [Suspect]
     Indication: GASTROINTESTINAL STROMAL TUMOUR
     Dosage: 50 MG, UNK
     Route: 048
     Dates: start: 20080815
  2. NAIXAN [Concomitant]
     Route: 048
     Dates: start: 20080815
  3. BIOFERMIN [Concomitant]
     Route: 048
     Dates: start: 20080818
  4. TAKEPRON [Concomitant]
     Route: 048
     Dates: start: 20080815
  5. RABEPRAZOLE SODIUM [Concomitant]
     Route: 048
     Dates: start: 20080815, end: 20080901
  6. HOKUNALIN [Concomitant]
     Route: 062
  7. AZUNOL [Concomitant]
     Dates: start: 20080826, end: 20080911
  8. LAFUTIDINE [Concomitant]
     Route: 048
     Dates: start: 20080901
  9. FLOMOX [Concomitant]
     Route: 048
     Dates: start: 20080904, end: 20080908
  10. PANSPORIN [Concomitant]
     Route: 042
     Dates: start: 20080903, end: 20080903

REACTIONS (5)
  - ANAEMIA [None]
  - CARDIAC FAILURE [None]
  - FACE OEDEMA [None]
  - LARYNGEAL OEDEMA [None]
  - PLATELET COUNT DECREASED [None]
